FAERS Safety Report 4953900-8 (Version None)
Quarter: 2006Q1

REPORT INFORMATION
  Report Type: 
  Country: None (occurrence: None)
  Receive Date: 20060322
  Receipt Date: 20060309
  Transmission Date: 20060701
  Serious: Yes (Hospitalization)
  Sender: FDA-Public Use
  Company Number: 2006034805

PATIENT
  Age: 32 Year
  Sex: Female

DRUGS (2)
  1. NIFEDIPINE [Suspect]
     Indication: ILL-DEFINED DISORDER
     Dates: start: 20060205
  2. LAMICTAL [Suspect]
     Indication: ILL-DEFINED DISORDER
     Dosage: SEE IMAGE

REACTIONS (4)
  - DRUG EXPOSURE DURING PREGNANCY [None]
  - GRAND MAL CONVULSION [None]
  - PREMATURE LABOUR [None]
  - TWIN PREGNANCY [None]
